FAERS Safety Report 10207366 (Version 1)
Quarter: 2014Q2

REPORT INFORMATION
  Report Type: Spontaneous
  Country: US (occurrence: US)
  Receive Date: 20140530
  Receipt Date: 20140530
  Transmission Date: 20141212
  Serious: No
  Sender: FDA-Public Use
  Company Number: US-GLAXOSMITHKLINE-A1038208A

PATIENT
  Sex: Male

DRUGS (3)
  1. VENTOLIN [Suspect]
     Indication: SARCOIDOSIS
     Dosage: 2PUFF SIX TIMES PER DAY
     Route: 055
     Dates: start: 201211
  2. SYMBICORT [Concomitant]
  3. METHADONE [Concomitant]

REACTIONS (1)
  - Drug screen positive [Unknown]
